FAERS Safety Report 5324793-4 (Version None)
Quarter: 2007Q2

REPORT INFORMATION
  Report Type: 
  Country: None (occurrence: None)
  Receive Date: 20070515
  Receipt Date: 20070508
  Transmission Date: 20071010
  Serious: Yes (Hospitalization)
  Sender: FDA-Public Use
  Company Number: PHBS2007ES07734

PATIENT
  Age: 72 Year
  Sex: Male

DRUGS (3)
  1. VOLTAREN [Suspect]
     Dosage: 50 MG, BID
     Route: 048
     Dates: start: 20011229
  2. NUROFEN [Suspect]
     Dosage: 1.8 GM/DAY
     Route: 048
  3. ACETAMINOPHEN [Concomitant]
     Dosage: 500 MG, UNK
     Dates: start: 20011229, end: 20020106

REACTIONS (4)
  - DIARRHOEA [None]
  - DRUG INTERACTION [None]
  - RECTAL HAEMORRHAGE [None]
  - SIGMOIDOSCOPY ABNORMAL [None]
